FAERS Safety Report 10469164 (Version 1)
Quarter: 2014Q3

REPORT INFORMATION
  Report Type: Spontaneous
  Country: SA (occurrence: None)
  Receive Date: 20140919
  Receipt Date: 20140919
  Transmission Date: 20150326
  Serious: Yes (Hospitalization, Congenital Anomaly)
  Sender: FDA-Public Use
  Company Number: VAL_03391_2014

PATIENT

DRUGS (9)
  1. EPOETIN ALFA [Concomitant]
     Active Substance: ERYTHROPOIETIN
  2. NEPHRO-VITE /02375601/ [Concomitant]
  3. ASPIRIN. [Concomitant]
     Active Substance: ASPIRIN
  4. SACCHARATED IRON OXIDE [Concomitant]
     Active Substance: IRON SUCROSE
  5. CALCITRIOL. [Suspect]
     Active Substance: CALCITRIOL
     Indication: PRODUCT USED FOR UNKNOWN INDICATION
     Dosage: 3X/WEEK TRANSPLACENTAL
  6. CALCIUM CARBONATE. [Concomitant]
     Active Substance: CALCIUM CARBONATE
  7. PREDNISONE. [Concomitant]
     Active Substance: PREDNISONE
  8. CYANOCOBALAMIN. [Concomitant]
     Active Substance: CYANOCOBALAMIN
  9. UNFRACTIONATED HEPARIN [Concomitant]
     Active Substance: HEPARIN SODIUM

REACTIONS (7)
  - Ventricular septal defect [None]
  - Premature baby [None]
  - Low birth weight baby [None]
  - Neonatal respiratory distress syndrome [None]
  - Patent ductus arteriosus [None]
  - Hyperbilirubinaemia [None]
  - Maternal drugs affecting foetus [None]
